FAERS Safety Report 6527259-9 (Version None)
Quarter: 2010Q1

REPORT INFORMATION
  Report Type: 
  Country: None (occurrence: None)
  Receive Date: 20100105
  Receipt Date: 20100103
  Transmission Date: 20100710
  Serious: Yes (Other)
  Sender: FDA-Public Use
  Company Number: US-PFIZER INC-2010000308

PATIENT
  Sex: Male
  Weight: 149.66 kg

DRUGS (3)
  1. XALATAN [Suspect]
     Indication: OPTIC NERVE DISORDER
     Dosage: ONE DROP IN EACH EYE
     Route: 047
     Dates: start: 20091001
  2. XALATAN [Suspect]
     Indication: GLAUCOMA
  3. GLYBURIDE [Concomitant]
     Indication: DIABETES MELLITUS
     Dosage: UNK

REACTIONS (5)
  - DRY EYE [None]
  - EYE IRRITATION [None]
  - EYE PAIN [None]
  - PHLEBITIS [None]
  - THROMBOSIS [None]
